FAERS Safety Report 4804022-8 (Version None)
Quarter: 2005Q4

REPORT INFORMATION
  Report Type: 
  Country: None (occurrence: None)
  Receive Date: 20051014
  Receipt Date: 20050928
  Transmission Date: 20060501
  Serious: Yes (Hospitalization)
  Sender: FDA-Public Use
  Company Number: 2005PV001587

PATIENT
  Age: 72 Year
  Sex: Female
  Weight: 70.0807 kg

DRUGS (15)
  1. SYMLIN [Suspect]
     Indication: DIABETES MELLITUS INSULIN-DEPENDENT
     Dosage: 60 MCG, SC; 15 MCG; SC
     Route: 058
     Dates: start: 20050718, end: 20050101
  2. SYMLIN [Suspect]
     Indication: DIABETES MELLITUS INSULIN-DEPENDENT
     Dosage: 60 MCG, SC; 15 MCG; SC
     Route: 058
     Dates: start: 20050810, end: 20050101
  3. SYNTHROID [Concomitant]
  4. ACCURETIC [Concomitant]
  5. VITAMIN B-12 [Concomitant]
  6. OXYTROL [Concomitant]
  7. ASPIRIN [Concomitant]
  8. ZOCOR [Concomitant]
  9. ALLEGRA [Concomitant]
  10. DITROPAN XL [Concomitant]
  11. FOSAMAX [Concomitant]
  12. CALTRATE [Concomitant]
  13. KLONOPIN [Concomitant]
  14. PLAVIX [Concomitant]
  15. COREG [Concomitant]

REACTIONS (5)
  - ANOREXIA [None]
  - BUNDLE BRANCH BLOCK LEFT [None]
  - MYOCARDIAL INFARCTION [None]
  - VOMITING [None]
  - WEIGHT DECREASED [None]
